FAERS Safety Report 6136595-X (Version None)
Quarter: 2009Q1

REPORT INFORMATION
  Report Type: 
  Country: None (occurrence: None)
  Receive Date: 20090330
  Receipt Date: 20090320
  Transmission Date: 20090719
  Serious: Yes (Other)
  Sender: FDA-Public Use
  Company Number: BR-PFIZER INC-2008098445

PATIENT

DRUGS (1)
  1. DEPO-PROVERA [Suspect]
     Indication: CONTRACEPTION
     Dosage: 150 MG, EVERY 3 MONTHS
     Dates: start: 20080125, end: 20080125

REACTIONS (5)
  - ABDOMINAL DISTENSION [None]
  - AMENORRHOEA [None]
  - DEPRESSION [None]
  - HYPERTENSION [None]
  - WEIGHT INCREASED [None]
